FAERS Safety Report 7319257-2 (Version None)
Quarter: 2011Q1

REPORT INFORMATION
  Report Type: 
  Country: None (occurrence: None)
  Receive Date: 20110228
  Receipt Date: 20101013
  Transmission Date: 20110831
  Serious: No
  Sender: FDA-Public Use
  Company Number: A0796655A

PATIENT
  Age: 13 Year
  Sex: Male

DRUGS (2)
  1. LAMICTAL [Suspect]
     Dosage: 25MG ALTERNATE DAYS
     Route: 048
     Dates: start: 20090707
  2. TRILEPTAL [Concomitant]

REACTIONS (3)
  - RASH MACULAR [None]
  - OROPHARYNGEAL DISCOMFORT [None]
  - CHEST DISCOMFORT [None]
